FAERS Safety Report 7173759-0 (Version None)
Quarter: 2010Q4

REPORT INFORMATION
  Report Type: 
  Country: None (occurrence: None)
  Receive Date: 20101202
  Receipt Date: 20101116
  Transmission Date: 20110411
  Serious: No
  Sender: FDA-Public Use
  Company Number: DSA_44368_2010

PATIENT
  Age: 87 Year
  Sex: Male

DRUGS (8)
  1. ENALAPRIL MALEATE [Suspect]
     Indication: ESSENTIAL HYPERTENSION
     Dosage: 5 MG QD ORAL
     Route: 048
     Dates: start: 20100527, end: 20100602
  2. ACETYLCYSTEINE [Concomitant]
  3. SYMBICORT [Concomitant]
  4. CITALOPRAM [Concomitant]
  5. ARDINEX /00166601/ [Concomitant]
  6. SOBRIL [Concomitant]
  7. BRICANYL [Concomitant]
  8. SPIRIVA [Concomitant]

REACTIONS (11)
  - BALANCE DISORDER [None]
  - BLISTER [None]
  - CONTUSION [None]
  - DERMATITIS BULLOUS [None]
  - DIZZINESS [None]
  - ECCHYMOSIS [None]
  - ERYTHEMA MULTIFORME [None]
  - GAIT DISTURBANCE [None]
  - NAUSEA [None]
  - WALKING AID USER [None]
  - WOUND [None]
